FAERS Safety Report 7926826-5 (Version None)
Quarter: 2011Q4

REPORT INFORMATION
  Report Type: 
  Country: None (occurrence: None)
  Receive Date: 20111118
  Receipt Date: 20111109
  Transmission Date: 20120403
  Serious: Yes (Other)
  Sender: FDA-Public Use
  Company Number: US-BAYER-2011-034304

PATIENT
  Age: 21 Year
  Sex: Female
  Weight: 57 kg

DRUGS (10)
  1. PROMETHAZINE [Concomitant]
     Dosage: 12.5 MG, TID
     Route: 048
  2. YASMIN [Suspect]
     Indication: MENSTRUAL DISORDER
  3. AMOXI CLAVULAN AL [Concomitant]
     Dosage: 875 MG, TID
     Route: 048
  4. YAZ [Suspect]
     Indication: MENSTRUAL DISORDER
  5. YASMIN [Suspect]
     Indication: PREMENSTRUAL SYNDROME
  6. YAZ [Suspect]
     Indication: ACNE
     Dosage: UNK
     Dates: start: 20080610, end: 20100501
  7. YASMIN [Suspect]
     Indication: ACNE
     Dosage: UNK
     Dates: start: 20051019, end: 20071001
  8. J-TAN D SR [Concomitant]
     Dosage: 30 MG, TID
     Route: 048
  9. YAZ [Suspect]
     Indication: PREMENSTRUAL SYNDROME
  10. NAPROXEN SODIUM AND PSEUDOEPHEDRINE HYDROCHLORIDE [Concomitant]
     Dosage: 500 MG, TID
     Route: 048

REACTIONS (4)
  - CHOLECYSTECTOMY [None]
  - INJURY [None]
  - CHOLECYSTITIS [None]
  - PAIN [None]
